FAERS Safety Report 19829437 (Version 1)
Quarter: 2021Q3

REPORT INFORMATION
  Report Type: Spontaneous
  Country: US (occurrence: US)
  Receive Date: 20210913
  Receipt Date: 20210913
  Transmission Date: 20211014
  Serious: Yes (Hospitalization)
  Sender: FDA-Public Use
  Company Number: None

PATIENT
  Age: 62 Year
  Sex: Female

DRUGS (1)
  1. INFED [Suspect]
     Active Substance: IRON DEXTRAN
     Indication: ANAEMIA
     Route: 042
     Dates: start: 20210910

REACTIONS (2)
  - Back pain [None]
  - Chest pain [None]

NARRATIVE: CASE EVENT DATE: 20210911
